FAERS Safety Report 4800728-5 (Version None)
Quarter: 2005Q4

REPORT INFORMATION
  Report Type: 
  Country: None (occurrence: None)
  Receive Date: 20051017
  Receipt Date: 20050831
  Transmission Date: 20060501
  Serious: Yes (Death, Hospitalization)
  Sender: FDA-Public Use
  Company Number: US-MERCK-0509USA00094

PATIENT
  Age: 73 Year
  Sex: Male
  Weight: 106 kg

DRUGS (2)
  1. VIOXX [Suspect]
     Indication: PAIN
     Route: 048
  2. VIOXX [Suspect]
     Indication: ARTHRITIS
     Route: 048

REACTIONS (12)
  - ACUTE MYOCARDIAL INFARCTION [None]
  - CARDIAC FAILURE CONGESTIVE [None]
  - CAROTID ARTERY OCCLUSION [None]
  - DEATH [None]
  - DIVERTICULITIS [None]
  - GOITRE [None]
  - HERNIA [None]
  - NOCTURIA [None]
  - SYNCOPE [None]
  - TONSILLAR HYPERTROPHY [None]
  - VENTRICULAR TACHYCARDIA [None]
  - WEIGHT INCREASED [None]
